FAERS Safety Report 4408294-3 (Version None)
Quarter: 2004Q3

REPORT INFORMATION
  Report Type: 
  Country: None (occurrence: None)
  Receive Date: 20040722
  Receipt Date: 20040716
  Transmission Date: 20050211
  Serious: Yes (Death)
  Sender: FDA-Public Use
  Company Number: US-JNJFOC-20040504842

PATIENT
  Age: 99 Year
  Sex: Female

DRUGS (6)
  1. RISPERDAL [Suspect]
     Dosage: ORAL
     Route: 048
  2. LASIX [Concomitant]
  3. GLUBURIDE (GLIBENCLAMIDE) [Concomitant]
  4. NTG (GLYCERYL TRINITRATE) [Concomitant]
  5. DIGOXIN [Concomitant]
  6. POTASSIUM (POTASSIUM) [Concomitant]

REACTIONS (1)
  - DEATH [None]
